FAERS Safety Report 6386377-9 (Version None)
Quarter: 2009Q3

REPORT INFORMATION
  Report Type: 
  Country: None (occurrence: None)
  Receive Date: 20090930
  Receipt Date: 20090930
  Transmission Date: 20100115
  Serious: Yes (Hospitalization)
  Sender: FDA-Public Use
  Company Number: None

PATIENT
  Sex: Female
  Weight: 95.2554 kg

DRUGS (1)
  1. LEVAQUIN [Suspect]
     Indication: CYSTITIS
     Dosage: ? 1X PER DAY PO
     Route: 048
     Dates: start: 20090815, end: 20090824

REACTIONS (11)
  - AGITATION [None]
  - AMNESIA [None]
  - ANXIETY [None]
  - BONE PAIN [None]
  - CONFUSIONAL STATE [None]
  - CONVULSION [None]
  - DECREASED APPETITE [None]
  - DEPRESSION [None]
  - HALLUCINATION [None]
  - PARANOIA [None]
  - TREMOR [None]
